FAERS Safety Report 21498317 (Version 1)
Quarter: 2022Q4

REPORT INFORMATION
  Report Type: Spontaneous
  Country: US (occurrence: None)
  Receive Date: 20221021
  Receipt Date: 20221021
  Transmission Date: 20230113
  Serious: No
  Sender: FDA-Public Use
  Company Number: None

PATIENT
  Age: 64 Year
  Sex: Female

DRUGS (2)
  1. SOMATULINE DEPOT [Suspect]
     Active Substance: LANREOTIDE ACETATE
     Indication: Acromegaly
     Dosage: OTHER STRENGTH : 120MG/.5M;?OTHER FREQUENCY : EVERY 8 WEEKS;?
     Route: 058
     Dates: start: 20201117
  2. SOMATULINE DEPOT [Suspect]
     Active Substance: LANREOTIDE ACETATE
     Indication: Gigantism

REACTIONS (3)
  - Device malfunction [None]
  - Needle issue [None]
  - Product dose omission issue [None]

NARRATIVE: CASE EVENT DATE: 20221021
